APPROVED DRUG PRODUCT: ERYTHROMYCIN
Active Ingredient: ERYTHROMYCIN
Strength: 500MG
Dosage Form/Route: TABLET;ORAL
Application: A209720 | Product #002
Applicant: AMNEAL PHARMACEUTICALS CO GMBH
Approved: Mar 9, 2018 | RLD: No | RS: No | Type: DISCN